FAERS Safety Report 8409595 (Version 5)
Quarter: 2014Q2

REPORT INFORMATION
  Report Type: Spontaneous
  Country: US (occurrence: US)
  Receive Date: 20120216
  Receipt Date: 20140501
  Transmission Date: 20141212
  Serious: Yes (Hospitalization, Other)
  Sender: FDA-Public Use
  Company Number: US-BAYER-2012-014798

PATIENT
  Age: 38 Year
  Sex: Female
  Weight: 72.52 kg

DRUGS (15)
  1. OCELLA [Suspect]
     Indication: MENSTRUATION IRREGULAR
     Dosage: UNK
     Route: 048
     Dates: start: 200903, end: 200909
  2. OCELLA [Suspect]
     Indication: DYSMENORRHOEA
  3. YASMIN [Suspect]
     Dosage: UNK
     Dates: start: 20090727, end: 20091002
  4. SYNTHROID [Concomitant]
     Indication: THYROID DISORDER
     Dosage: UNK
     Dates: start: 2002
  5. ADVIL [Concomitant]
  6. ZITHROMAX [Concomitant]
  7. FLONASE [Concomitant]
     Indication: MULTIPLE ALLERGIES
     Dosage: UNK
     Dates: start: 2008
  8. HYDROCODONE [Concomitant]
     Indication: HEADACHE
     Dosage: UNK
     Dates: start: 2011
  9. HYDROCODONE [Concomitant]
     Indication: DYSMENORRHOEA
  10. TUMS [CALCIUM CARBONATE] [Concomitant]
     Indication: DYSPEPSIA
     Dosage: UNK
     Dates: start: 200909
  11. CETIRIZINE [Concomitant]
     Dosage: 10 MG, UNK
  12. ALPRAZOLAM [Concomitant]
  13. ZYRTEC [Concomitant]
     Dosage: UNK
  14. PRILOSEC [Concomitant]
     Dosage: UNK
  15. VICODIN [Concomitant]
     Dosage: UNK

REACTIONS (9)
  - Gallbladder disorder [None]
  - Cholecystitis chronic [None]
  - Biliary dyskinesia [None]
  - Abdominal pain [None]
  - Dizziness [None]
  - Chest pain [None]
  - Vomiting [None]
  - Pain [None]
  - Off label use [None]
